FAERS Safety Report 17618954 (Version 3)
Quarter: 2020Q2

REPORT INFORMATION
  Report Type: Report from Study
  Country: US (occurrence: US)
  Receive Date: 20200402
  Receipt Date: 20200508
  Transmission Date: 20200713
  Serious: Yes (Death, Hospitalization)
  Sender: FDA-Public Use
  Company Number: US-ACTELION-A-NJ2020-202817

PATIENT
  Age: 56 Year
  Sex: Male

DRUGS (11)
  1. MIDODRINE [Concomitant]
     Active Substance: MIDODRINE
     Indication: HYPOTENSION
     Dosage: 10 MG, TID
  2. PROTONIX [OMEPRAZOLE] [Concomitant]
     Active Substance: OMEPRAZOLE
     Dosage: 40 MG, BID
  3. UPTRAVI [Suspect]
     Active Substance: SELEXIPAG
     Indication: PULMONARY HYPERTENSION
     Dosage: 400 MCG, BID
     Route: 048
  4. UPTRAVI [Suspect]
     Active Substance: SELEXIPAG
     Dosage: 200 MCG, BID
     Route: 048
     Dates: start: 20200213
  5. ATORVASTATIN [Concomitant]
     Active Substance: ATORVASTATIN
     Dosage: 80 MG, QD
  6. ELIQUIS [Concomitant]
     Active Substance: APIXABAN
     Dosage: 5 MG, BID
  7. AZITHROMYCIN ANHYDROUS. [Concomitant]
     Active Substance: AZITHROMYCIN ANHYDROUS
  8. OXYGEN. [Concomitant]
     Active Substance: OXYGEN
     Dosage: 4 L
  9. ASA [Concomitant]
     Active Substance: ASPIRIN
     Indication: CORONARY ARTERY DISEASE
  10. OPSUMIT [Suspect]
     Active Substance: MACITENTAN
     Indication: PULMONARY HYPERTENSION
     Dosage: 10 MG, QD
     Route: 048
     Dates: start: 20200203, end: 20200321
  11. TOPROL XL [Concomitant]
     Active Substance: METOPROLOL SUCCINATE
     Indication: ATRIAL FIBRILLATION
     Dosage: 25 MG, QD

REACTIONS (30)
  - End stage renal disease [Fatal]
  - Dyspnoea [Unknown]
  - Hypoxia [Recovering/Resolving]
  - Blood urea increased [Unknown]
  - Oxygen consumption increased [Unknown]
  - Coronavirus test positive [Fatal]
  - Acidosis [Unknown]
  - Blood lactic acid increased [Unknown]
  - Aspartate aminotransferase increased [Unknown]
  - Haemoglobin decreased [Unknown]
  - Pneumonia viral [Unknown]
  - Tachycardia [Unknown]
  - Blood alkaline phosphatase increased [Unknown]
  - White blood cell count increased [Unknown]
  - PCO2 increased [Unknown]
  - PO2 increased [Unknown]
  - Abdominal pain upper [Recovered/Resolved]
  - Pulseless electrical activity [Fatal]
  - Bradycardia [Unknown]
  - Fatigue [Unknown]
  - Troponin increased [Unknown]
  - Cardiac arrest [Unknown]
  - Pyrexia [Unknown]
  - Blood creatinine increased [Unknown]
  - Pneumonia [Fatal]
  - Atrial fibrillation [Fatal]
  - Oxygen saturation decreased [Unknown]
  - Haematocrit decreased [Unknown]
  - Fluid overload [Unknown]
  - Blood pH decreased [Unknown]

NARRATIVE: CASE EVENT DATE: 20200224
